FAERS Safety Report 20091235 (Version 2)
Quarter: 2021Q4

REPORT INFORMATION
  Report Type: Spontaneous
  Country: RO (occurrence: None)
  Receive Date: 20211119
  Receipt Date: 20211207
  Transmission Date: 20220303
  Serious: Yes (Other)
  Sender: FDA-Public Use
  Company Number: 2021A805980

PATIENT
  Sex: Female

DRUGS (1)
  1. FASENRA [Suspect]
     Active Substance: BENRALIZUMAB
     Indication: Asthma
     Route: 058
     Dates: end: 202109

REACTIONS (1)
  - Breast neoplasm [Recovering/Resolving]

NARRATIVE: CASE EVENT DATE: 20210923
